FAERS Safety Report 17693199 (Version 3)
Quarter: 2020Q2

REPORT INFORMATION
  Report Type: Spontaneous
  Country: US (occurrence: US)
  Receive Date: 20200422
  Receipt Date: 20200519
  Transmission Date: 20200714
  Serious: Yes (Death, Other)
  Sender: FDA-Public Use
  Company Number: US-BIOGEN-2020BI00865573

PATIENT
  Age: 44 Year
  Sex: Male

DRUGS (1)
  1. TECFIDERA [Suspect]
     Active Substance: DIMETHYL FUMARATE
     Indication: MULTIPLE SCLEROSIS
     Route: 065
     Dates: start: 20140903

REACTIONS (3)
  - Syncope [Unknown]
  - Deafness [Unknown]
  - COVID-19 [Fatal]

NARRATIVE: CASE EVENT DATE: 202004
